FAERS Safety Report 15878995 (Version 1)
Quarter: 2019Q1

REPORT INFORMATION
  Report Type: Spontaneous
  Country: FR (occurrence: FR)
  Receive Date: 20190128
  Receipt Date: 20190128
  Transmission Date: 20190417
  Serious: Yes (Other)
  Sender: FDA-Public Use
  Company Number: FR-ZYDUS-032867

PATIENT
  Age: 70 Year
  Sex: Female

DRUGS (2)
  1. GALANTAMINE. [Suspect]
     Active Substance: GALANTAMINE
     Indication: DEMENTIA ALZHEIMER^S TYPE
     Dosage: ()
     Dates: start: 201707, end: 20181015
  2. GALANTAMINE/GALANTAMINE HYDROBROMIDE [Suspect]
     Active Substance: GALANTAMINE\GALANTAMINE HYDROBROMIDE
     Indication: DEMENTIA ALZHEIMER^S TYPE
     Route: 048
     Dates: start: 201707, end: 20181015

REACTIONS (3)
  - Condition aggravated [Unknown]
  - Confusional state [Unknown]
  - Withdrawal syndrome [Unknown]

NARRATIVE: CASE EVENT DATE: 20181015
